FAERS Safety Report 11590003 (Version 4)
Quarter: 2015Q4

REPORT INFORMATION
  Report Type: Spontaneous
  Country: JP (occurrence: JP)
  Receive Date: 20151002
  Receipt Date: 20151123
  Transmission Date: 20160304
  Serious: Yes (Death, Hospitalization, Other)
  Sender: FDA-Public Use
  Company Number: JP-BAYER-2015-065164

PATIENT
  Age: 86 Year
  Sex: Male

DRUGS (4)
  1. FENTANYL CITRATE. [Suspect]
     Active Substance: FENTANYL CITRATE
     Dosage: 2 MG, QD
     Route: 062
     Dates: start: 201504
  2. FENTANYL CITRATE. [Suspect]
     Active Substance: FENTANYL CITRATE
     Dosage: 1 MG, QD
     Route: 062
     Dates: start: 2015, end: 2015
  3. NEXAVAR [Suspect]
     Active Substance: SORAFENIB
     Indication: HEPATOCELLULAR CARCINOMA
     Dosage: DAILY DOSE 600 MG
     Route: 048
     Dates: start: 20120322, end: 201503
  4. ABSTRAL [Suspect]
     Active Substance: FENTANYL CITRATE
     Indication: BREAKTHROUGH PAIN
     Dosage: UNK
     Route: 060
     Dates: start: 201504, end: 201504

REACTIONS (6)
  - Hypoxia [Fatal]
  - Hepatic function abnormal [None]
  - Neoplasm [None]
  - Interstitial lung disease [Recovering/Resolving]
  - Delirium [Fatal]
  - Metastases to spine [None]

NARRATIVE: CASE EVENT DATE: 2015
